FAERS Safety Report 7253379-X (Version None)
Quarter: 2011Q1

REPORT INFORMATION
  Report Type: 
  Country: None (occurrence: None)
  Receive Date: 20110129
  Receipt Date: 20100412
  Transmission Date: 20110831
  Serious: No
  Sender: FDA-Public Use
  Company Number: US-ABBOTT-10P-163-0634440-00

PATIENT
  Sex: Female
  Weight: 77.18 kg

DRUGS (6)
  1. HUMIRA [Suspect]
     Dates: start: 20090601, end: 20100101
  2. HUMIRA [Suspect]
     Indication: PSORIASIS
     Dates: start: 20080901
  3. CLOBETASOL [Concomitant]
     Indication: PSORIASIS
     Route: 061
  4. UNKNOWN TOPICAL SPRAY [Concomitant]
     Indication: PSORIASIS
  5. ATENOLOL [Concomitant]
     Indication: HYPERTENSION
  6. TAPAZOL [Concomitant]
     Indication: HYPERTHYROIDISM

REACTIONS (2)
  - PSORIASIS [None]
  - PRURITUS [None]
